FAERS Safety Report 16600185 (Version 1)
Quarter: 2019Q3

REPORT INFORMATION
  Report Type: Spontaneous
  Country: FR (occurrence: FR)
  Receive Date: 20190720
  Receipt Date: 20190720
  Transmission Date: 20191004
  Serious: Yes (Other)
  Sender: FDA-Public Use
  Company Number: FR-TEVA-2019-FR-1079334

PATIENT
  Sex: Male
  Weight: 66 kg

DRUGS (5)
  1. TRUXIMA [Suspect]
     Active Substance: RITUXIMAB-ABBS
     Indication: RHEUMATOID ARTHRITIS
     Route: 041
     Dates: start: 201811, end: 201811
  2. COSENTYX [Suspect]
     Active Substance: SECUKINUMAB
     Indication: ANKYLOSING SPONDYLITIS
     Route: 042
     Dates: start: 201702, end: 201711
  3. ANAKINRA ((BACTERIE/ESCHERICHIA COLI)) [Suspect]
     Active Substance: ANAKINRA
     Indication: ANKYLOSING SPONDYLITIS
     Route: 042
     Dates: start: 201804, end: 201811
  4. INFLIXIMAB ((MAMMIFERE/HAMSTER/CELLULES CHO)) [Suspect]
     Active Substance: INFLIXIMAB
     Indication: ANKYLOSING SPONDYLITIS
     Route: 042
     Dates: start: 201711, end: 201801
  5. PREDNISONE. [Suspect]
     Active Substance: PREDNISONE
     Indication: ANKYLOSING SPONDYLITIS
     Route: 048
     Dates: start: 2015

REACTIONS (2)
  - Polyneuropathy [Not Recovered/Not Resolved]
  - Peripheral sensory neuropathy [Not Recovered/Not Resolved]

NARRATIVE: CASE EVENT DATE: 201702
